FAERS Safety Report 7419587-X (Version None)
Quarter: 2011Q1

REPORT INFORMATION
  Report Type: 
  Country: None (occurrence: None)
  Receive Date: 20110302
  Receipt Date: 20101109
  Transmission Date: 20110831
  Serious: No
  Sender: FDA-Public Use
  Company Number: 021427

PATIENT
  Sex: Female

DRUGS (2)
  1. CIMZIA [Suspect]
     Indication: CROHN'S DISEASE
     Dosage: (400 MG, NEXT DOSE ON 11/11/10 AND SUBSEQUENTLY, IT WILL BE ONCE EVERY FOUR WEEK SUBCUTANEOUS)
     Route: 058
     Dates: start: 20101015
  2. CIMZIA [Suspect]
     Indication: RHEUMATOID ARTHRITIS
     Dosage: (400 MG, NEXT DOSE ON 11/11/10 AND SUBSEQUENTLY, IT WILL BE ONCE EVERY FOUR WEEK SUBCUTANEOUS)
     Route: 058
     Dates: start: 20101015

REACTIONS (4)
  - ABDOMINAL PAIN [None]
  - FATIGUE [None]
  - INJECTION SITE HAEMATOMA [None]
  - INJECTION SITE PAIN [None]
